FAERS Safety Report 8583902-4 (Version None)
Quarter: 2012Q3

REPORT INFORMATION
  Report Type: 
  Country: None (occurrence: None)
  Receive Date: 20120810
  Receipt Date: 20120703
  Transmission Date: 20120928
  Serious: Yes (Hospitalization, Congenital Anomaly)
  Sender: FDA-Public Use
  Company Number: JP-MERCK SHARP & DOHME D.O.O.-1206USA01925

PATIENT

DRUGS (12)
  1. METFORMIN HCL [Concomitant]
     Dosage: 250 MG, BID
     Route: 048
     Dates: start: 20111014, end: 20120524
  2. GLUFAST [Suspect]
     Dosage: 10 MG, TID
     Route: 048
     Dates: start: 20111014, end: 20120524
  3. LANSOPRAZOLE [Suspect]
     Dosage: 15 MG, ONCE
     Route: 048
     Dates: start: 20111014, end: 20120524
  4. MICARDIS [Suspect]
     Dosage: 40 MG, ONCE
     Route: 048
     Dates: start: 20111014, end: 20120524
  5. DAI-KENCHU-TO [Suspect]
     Dosage: 2.5 G, TID
     Route: 048
     Dates: start: 20111014, end: 20120524
  6. GASMOTIN [Suspect]
     Dosage: 5 MG, TID
     Route: 048
     Dates: start: 20111014
  7. INSULIN [Concomitant]
     Dosage: DOSAGE IS UNCERTAIN DURING A DAY
     Route: 058
  8. LANIRAPID [Suspect]
     Dosage: 0.1 MG, ONCE
     Route: 048
     Dates: start: 20111014, end: 20120524
  9. NIFEDIPINE [Suspect]
     Dosage: 20 MG, ONCE
     Route: 048
     Dates: start: 20111014, end: 20120524
  10. METFORMIN HCL [Suspect]
     Indication: DIABETES MELLITUS
     Dosage: 250 MG, BID
     Route: 048
     Dates: start: 20111014, end: 20120524
  11. JANUVIA [Suspect]
     Indication: DIABETES MELLITUS
     Dosage: 50 MG, BID
     Route: 048
     Dates: start: 20111014, end: 20120524
  12. ASPIRIN [Suspect]
     Dosage: 100 MG, ONCE
     Route: 048
     Dates: start: 20111014, end: 20120524

REACTIONS (2)
  - HIATUS HERNIA [None]
  - GASTROOESOPHAGEAL REFLUX DISEASE [None]
